FAERS Safety Report 4502746-3 (Version None)
Quarter: 2004Q4

REPORT INFORMATION
  Report Type: 
  Country: None (occurrence: None)
  Receive Date: 20041116
  Receipt Date: 20041108
  Transmission Date: 20050328
  Serious: Yes (Disabling)
  Sender: FDA-Public Use
  Company Number: US-MERCK-0411USA01521

PATIENT
  Age: 62 Year
  Sex: Female

DRUGS (9)
  1. ZETIA [Suspect]
     Indication: BLOOD CHOLESTEROL INCREASED
     Route: 048
     Dates: start: 20030522
  2. CRESTOR [Concomitant]
     Route: 065
     Dates: start: 20031101
  3. AVANDIA [Concomitant]
     Route: 065
  4. BENICAR [Concomitant]
     Route: 065
  5. LEVOXYL [Concomitant]
     Route: 065
  6. NEXIUM [Concomitant]
     Route: 065
  7. SINGULAIR [Concomitant]
     Route: 065
  8. SEREVENT [Concomitant]
     Route: 065
  9. SPIRIVA [Concomitant]
     Route: 065

REACTIONS (2)
  - MYALGIA [None]
  - PAIN [None]
